FAERS Safety Report 15223317 (Version 1)
Quarter: 2018Q3

REPORT INFORMATION
  Report Type: Spontaneous
  Country: US (occurrence: US)
  Receive Date: 20180731
  Receipt Date: 20180731
  Transmission Date: 20181010
  Serious: Yes (Hospitalization)
  Sender: FDA-Public Use
  Company Number: PHHY2018US051520

PATIENT
  Age: 25 Year
  Sex: Female

DRUGS (1)
  1. METHADONE [Suspect]
     Active Substance: METHADONE HYDROCHLORIDE
     Indication: PRODUCT USED FOR UNKNOWN INDICATION
     Route: 065

REACTIONS (11)
  - Hypoxia [Unknown]
  - Tachypnoea [Unknown]
  - Stress cardiomyopathy [Unknown]
  - Mydriasis [Unknown]
  - Overdose [Unknown]
  - Leukocytosis [Unknown]
  - Hypotension [Unknown]
  - Cardiotoxicity [Unknown]
  - Cardiogenic shock [Unknown]
  - Sinus tachycardia [Unknown]
  - Cardiac arrest [Unknown]
